FAERS Safety Report 8483819-X (Version None)
Quarter: 2012Q3

REPORT INFORMATION
  Report Type: 
  Country: None (occurrence: None)
  Receive Date: 20120703
  Receipt Date: 20120628
  Transmission Date: 20120928
  Serious: No
  Sender: FDA-Public Use
  Company Number: US-BIOGENIDEC-2012BI023128

PATIENT
  Age: 49 Year
  Sex: Female

DRUGS (2)
  1. TYSABRI [Suspect]
     Indication: MULTIPLE SCLEROSIS
     Route: 042
     Dates: start: 20101004
  2. AVONEX [Concomitant]

REACTIONS (6)
  - HYPERHIDROSIS [None]
  - FATIGUE [None]
  - DRUG EFFECT DECREASED [None]
  - FALL [None]
  - MUSCULAR WEAKNESS [None]
  - PAIN IN EXTREMITY [None]
